FAERS Safety Report 4629297-X (Version None)
Quarter: 2005Q2

REPORT INFORMATION
  Report Type: 
  Country: None (occurrence: None)
  Receive Date: 20050407
  Receipt Date: 20050303
  Transmission Date: 20051028
  Serious: Yes (Other)
  Sender: FDA-Public Use
  Company Number: US-MERCK-0503USA00723

PATIENT
  Age: 51 Year
  Sex: Male
  Weight: 92 kg

DRUGS (6)
  1. EFFEXOR XR [Concomitant]
     Indication: MOOD ALTERED
     Route: 065
     Dates: start: 20030901
  2. GLUCOVANCE [Concomitant]
     Indication: DIABETES MELLITUS
     Route: 065
     Dates: start: 20040501, end: 20040101
  3. CODEINE [Concomitant]
     Route: 065
  4. ZETIA [Suspect]
     Indication: DYSLIPIDAEMIA
     Route: 048
     Dates: start: 20040625, end: 20040811
  5. ZETIA [Suspect]
     Indication: HYPERLIPIDAEMIA
     Route: 048
     Dates: start: 20040625, end: 20040811
  6. ASPIRIN [Concomitant]
     Route: 065

REACTIONS (1)
  - AUTOIMMUNE HEPATITIS [None]
